FAERS Safety Report 8907770 (Version 3)
Quarter: 2013Q2

REPORT INFORMATION
  Report Type: Spontaneous
  Country: JP (occurrence: JP)
  Receive Date: 20121114
  Receipt Date: 20130614
  Transmission Date: 20140414
  Serious: Yes (Death)
  Sender: FDA-Public Use
  Company Number: JP-GE HEALTHCARE MEDICAL DIAGNOSTICS-MSTR-NO-1211S-0062

PATIENT
  Age: 71 Year
  Sex: Male

DRUGS (3)
  1. METASTRON [Suspect]
     Indication: METASTATIC PAIN
     Route: 042
     Dates: start: 20120525, end: 20120525
  2. METASTRON [Suspect]
     Indication: THERAPEUTIC PROCEDURE
     Dosage: 2.0 MBQ/KG
     Route: 042
     Dates: start: 20120106, end: 20120106
  3. DOX [Concomitant]

REACTIONS (1)
  - Disseminated intravascular coagulation [Fatal]
